FAERS Safety Report 9676109 (Version 1)
Quarter: 2013Q4

REPORT INFORMATION
  Report Type: Spontaneous
  Country: US (occurrence: US)
  Receive Date: 20131107
  Receipt Date: 20131107
  Transmission Date: 20140711
  Serious: Yes (Other)
  Sender: FDA-Public Use
  Company Number: US-MALLINCKRODT-T201304780

PATIENT
  Age: 32 Year
  Sex: Female

DRUGS (3)
  1. OXYCODONE [Suspect]
     Indication: PRODUCT USED FOR UNKNOWN INDICATION
     Dosage: UNK
     Route: 045
  2. HYDROCODONE BITARTRATE [Suspect]
     Dosage: UNK
     Route: 045
  3. CODEINE PHOSPHATE [Suspect]
     Dosage: UNK
     Route: 045

REACTIONS (6)
  - Nasal septum perforation [Unknown]
  - Rhinitis [Recovering/Resolving]
  - Sinusitis [Recovering/Resolving]
  - Rhinalgia [Unknown]
  - Facial pain [Unknown]
  - Drug abuse [Unknown]
